FAERS Safety Report 4331707-2 (Version None)
Quarter: 2004Q2

REPORT INFORMATION
  Report Type: 
  Country: None (occurrence: None)
  Receive Date: 20040405
  Receipt Date: 20030326
  Transmission Date: 20050107
  Serious: No
  Sender: FDA-Public Use
  Company Number: US-GLAXOSMITHKLINE-A0402172A

PATIENT
  Sex: Male

DRUGS (5)
  1. FLOVENT [Suspect]
     Indication: ASTHMA
     Route: 055
  2. SEREVENT [Suspect]
     Indication: ASTHMA
     Route: 055
  3. THEOPHYLLINE [Concomitant]
  4. ALBUTEROL [Concomitant]
  5. SINGULAIR [Concomitant]

REACTIONS (1)
  - ASTHMA [None]
